FAERS Safety Report 6665309-X (Version None)
Quarter: 2010Q1

REPORT INFORMATION
  Report Type: 
  Country: None (occurrence: None)
  Receive Date: 20100331
  Receipt Date: 20100319
  Transmission Date: 20100710
  Serious: Yes (Other)
  Sender: FDA-Public Use
  Company Number: RB-05670-2010

PATIENT
  Age: 24 Month
  Sex: Female
  Weight: 11.7935 kg

DRUGS (4)
  1. DELSYM [Suspect]
     Indication: COUGH
     Dosage: 2.5 ML 1X/12 HOURS, ORAL, 2.5 ML TOTAL ORAL
     Route: 048
     Dates: start: 20100311, end: 20100316
  2. DELSYM [Suspect]
     Indication: COUGH
     Dosage: 2.5 ML 1X/12 HOURS, ORAL, 2.5 ML TOTAL ORAL
     Route: 048
     Dates: start: 20100317, end: 20100317
  3. IBUPROFEN [Concomitant]
  4. ZYRTEC [Concomitant]

REACTIONS (8)
  - DECREASED APPETITE [None]
  - EMOTIONAL DISORDER [None]
  - EYE DISORDER [None]
  - HEAD BANGING [None]
  - HYPOPHAGIA [None]
  - PSYCHOMOTOR HYPERACTIVITY [None]
  - THIRST DECREASED [None]
  - TREMOR [None]
